FAERS Safety Report 17475047 (Version 1)
Quarter: 2020Q1

REPORT INFORMATION
  Report Type: Report from Study
  Country: BR (occurrence: BR)
  Receive Date: 20200228
  Receipt Date: 20200228
  Transmission Date: 20200409
  Serious: Yes (Other)
  Sender: FDA-Public Use
  Company Number: BR-JNJFOC-20190116722

PATIENT
  Age: 57 Year
  Sex: Female

DRUGS (13)
  1. METHOTREXATE. [Concomitant]
     Active Substance: METHOTREXATE
     Route: 065
  2. GLIFAGE [Concomitant]
     Active Substance: METFORMIN HYDROCHLORIDE
     Indication: TYPE 2 DIABETES MELLITUS
  3. RIVOTRIL [Concomitant]
     Active Substance: CLONAZEPAM
     Route: 065
  4. SIMPONI [Suspect]
     Active Substance: GOLIMUMAB
     Indication: PSORIATIC ARTHROPATHY
     Route: 058
     Dates: start: 20180725, end: 201809
  5. FAMOTIDINE. [Concomitant]
     Active Substance: FAMOTIDINE
     Indication: PAIN
     Route: 065
  6. TECNOMET [Concomitant]
     Active Substance: METHOTREXATE
     Route: 065
  7. TENOXICAM [Concomitant]
     Active Substance: TENOXICAM
     Indication: PAIN
     Route: 065
  8. PROCIMAX [Concomitant]
     Active Substance: CITALOPRAM HYDROBROMIDE
     Route: 065
  9. RIVOTRIL [Concomitant]
     Active Substance: CLONAZEPAM
     Indication: ANXIETY
     Route: 065
  10. CANDESARTAN CILEXETIL. [Concomitant]
     Active Substance: CANDESARTAN CILEXETIL
     Route: 065
  11. TREZOR [Concomitant]
     Active Substance: ROSUVASTATIN CALCIUM
     Route: 065
  12. ABLOK [Concomitant]
     Active Substance: ATENOLOL
     Indication: BLOOD PRESSURE MEASUREMENT
  13. METILDOPA [Concomitant]
     Active Substance: METHYLDOPA
     Route: 065

REACTIONS (8)
  - Oral candidiasis [Recovered/Resolved]
  - Wound [Unknown]
  - Bladder injury [Unknown]
  - Synovial cyst [Unknown]
  - Pharyngitis [Unknown]
  - Psoriatic arthropathy [Not Recovered/Not Resolved]
  - Dizziness [Recovered/Resolved]
  - Urinary tract infection [Recovering/Resolving]

NARRATIVE: CASE EVENT DATE: 2018
